FAERS Safety Report 15302021 (Version 1)
Quarter: 2018Q3

REPORT INFORMATION
  Report Type: Spontaneous
  Country: DE (occurrence: DE)
  Receive Date: 20180821
  Receipt Date: 20180821
  Transmission Date: 20181010
  Serious: Yes (Hospitalization)
  Sender: FDA-Public Use
  Company Number: DE-TEVA-2018-DE-945777

PATIENT
  Age: 82 Year
  Sex: Female

DRUGS (10)
  1. DULOXETIN [Suspect]
     Active Substance: DULOXETINE
     Dosage: 60 MILLIGRAM DAILY;
     Route: 048
     Dates: start: 20171101, end: 20171102
  2. RAMIPRIL. [Concomitant]
     Active Substance: RAMIPRIL
     Dosage: 2.5 MILLIGRAM DAILY; APPLICATION FOR MONTHS
     Route: 048
  3. FENTANYL. [Concomitant]
     Active Substance: FENTANYL
     Dosage: 12 MICROGRAM DAILY; APPLICATION FOR MONTHS
  4. MIRTAZAPIN [Concomitant]
     Active Substance: MIRTAZAPINE
     Dosage: 15 MILLIGRAM DAILY;
     Route: 048
     Dates: start: 20171020, end: 20171201
  5. DULOXETIN [Suspect]
     Active Substance: DULOXETINE
     Dosage: 30 MILLIGRAM DAILY;
     Route: 048
     Dates: start: 20171027, end: 20171031
  6. AMLODIPIN [Concomitant]
     Active Substance: AMLODIPINE BESYLATE
     Dosage: 5 MILLIGRAM DAILY; APPLICATION FOR MONTHS
     Route: 048
  7. ASS 100 [Concomitant]
     Active Substance: ASPIRIN
     Dosage: 100 MILLIGRAM DAILY; APPLICATION FOR MONTHS
     Route: 048
  8. ATORVASTATIN [Concomitant]
     Active Substance: ATORVASTATIN
     Dosage: 20 MILLIGRAM DAILY; APPLICATION FOR MONTHS
     Route: 048
  9. ARIXTRA [Concomitant]
     Active Substance: FONDAPARINUX SODIUM
     Dosage: 2.5 MILLIGRAM DAILY; APPLICATION FOR MONTHS
     Route: 048
  10. DEKRISTOL [Concomitant]
     Active Substance: CHOLECALCIFEROL
     Dosage: 1000 IU (INTERNATIONAL UNIT) DAILY; APPLICATION FOR MONTHS
     Route: 048

REACTIONS (3)
  - Pruritus [Recovered/Resolved]
  - Dermatitis allergic [Recovered/Resolved]
  - Rash generalised [Recovered/Resolved]

NARRATIVE: CASE EVENT DATE: 20171103
